FAERS Safety Report 16119042 (Version 1)
Quarter: 2019Q1

REPORT INFORMATION
  Report Type: Spontaneous
  Country: FR (occurrence: FR)
  Receive Date: 20190326
  Receipt Date: 20190326
  Transmission Date: 20190418
  Serious: Yes (Hospitalization)
  Sender: FDA-Public Use
  Company Number: FR-PFIZER INC-2019124317

PATIENT
  Age: 92 Year
  Sex: Female
  Weight: 50 kg

DRUGS (1)
  1. ZYVOXID [Suspect]
     Active Substance: LINEZOLID
     Indication: SEPTIC ARTHRITIS STAPHYLOCOCCAL
     Dosage: UNK
     Route: 042
     Dates: start: 201901, end: 20190220

REACTIONS (2)
  - Aplastic anaemia [Recovering/Resolving]
  - Reticulocyte count decreased [Recovered/Resolved]

NARRATIVE: CASE EVENT DATE: 20190220
